FAERS Safety Report 5230002-7 (Version None)
Quarter: 2007Q1

REPORT INFORMATION
  Report Type: 
  Country: None (occurrence: None)
  Receive Date: 20070206
  Receipt Date: 20060817
  Transmission Date: 20070707
  Serious: No
  Sender: FDA-Public Use
  Company Number: US017907

PATIENT
  Age: 40 Year
  Sex: Female
  Weight: 159.1 kg

DRUGS (4)
  1. PAXIL [Suspect]
     Indication: DEPRESSION
     Route: 048
  2. PROVIGIL [Suspect]
     Indication: MULTIPLE SCLEROSIS
     Dosage: 200MG PER DAY
     Route: 048
     Dates: start: 20010101
  3. ANTIHYPERTENSIVE [Concomitant]
  4. LIPITOR [Concomitant]

REACTIONS (1)
  - FALL [None]
